FAERS Safety Report 9821174 (Version 3)
Quarter: 2014Q1

REPORT INFORMATION
  Report Type: Other
  Country: NO (occurrence: NO)
  Receive Date: 20140116
  Receipt Date: 20140313
  Transmission Date: 20141002
  Serious: Yes (Other)
  Sender: FDA-Public Use
  Company Number: NO-RB-062588-14

PATIENT
  Age: 33 Year
  Sex: Male

DRUGS (31)
  1. BUPRENORPHINE [Suspect]
     Indication: PRODUCT USED FOR UNKNOWN INDICATION
     Dosage: DOSAGE DETAILS UNKNOWN
     Route: 065
  2. BUPRENORPHINE [Suspect]
     Dosage: DOSING INFORMATION UNKNOWN
     Route: 065
  3. TRUXAL [Suspect]
     Indication: PRODUCT USED FOR UNKNOWN INDICATION
     Dosage: 0.2 DDD (DEFINED DAILY DOSE - ASSUMED AVERAGE MAINTENANCE DOSE PER DAY)
     Route: 065
  4. RISPERIDONE [Suspect]
     Dosage: 0.8 DDDS (DEFINED DAILY DOSE - ASSUMED AVERAGE MAINTENANCE DOSE PER DAY)
     Route: 065
  5. RISPERIDONE [Suspect]
     Indication: PRODUCT USED FOR UNKNOWN INDICATION
     Dosage: 0.3 DDDS (DEFINED DAILY DOSE - ASSUMED AVERAGE MAINTENANCE DOSE PER DAY)
     Route: 065
  6. AMISULPRIDE [Suspect]
     Dosage: 1.5 DDDS (DEFINED DAILY DOSE - ASSUMED AVERAGE MAINTENANCE DOSE PER DAY)
     Route: 065
  7. AMISULPRIDE [Suspect]
     Indication: PRODUCT USED FOR UNKNOWN INDICATION
     Dosage: 2.5 DDDS (DEFINED DAILY DOSE - ASSUMED AVERAGE MAINTENANCE DOSE PER DAY)
     Route: 065
  8. AMISULPRIDE [Suspect]
     Dosage: DOSING DETAILS UNKNOWN
     Route: 065
  9. AMISULPRIDE [Suspect]
     Dosage: 1 DDDS (DEFINED DAILY DOSE - ASSUMED AVERAGE MAINTENANCE DOSE PER DAY)
     Route: 065
  10. OLANZAPINE [Suspect]
     Dosage: 2.5 DDDS (DEFINED DAILY DOSE - ASSUMED AVERAGE MAINTENANCE DOSE PER DAY)
     Route: 065
  11. OLANZAPINE [Suspect]
     Dosage: 1.5 DDDS (DEFINED DAILY DOSE - ASSUMED AVERAGE MAINTENANCE DOSE PER DAY)
     Route: 065
  12. OLANZAPINE [Suspect]
     Indication: PRODUCT USED FOR UNKNOWN INDICATION
     Dosage: IRREGULAR USE IN DIFFERENT NOT PROVIDED DOSES
     Route: 065
  13. OLANZAPINE [Suspect]
     Dosage: 1 DE PRN (AS NEEDED)
     Route: 065
  14. OLANZAPINE [Suspect]
     Dosage: 0.2 DDDS  (DEFINED DAILY DOSE - ASSUMED AVERAGE MAINTENANCE DOSE PER DAY)
     Route: 065
  15. LEVOMEPROMAZINE [Suspect]
     Indication: PRODUCT USED FOR UNKNOWN INDICATION
     Dosage: ON DEMAND (UNSPECIFIED DOSAGE)
     Route: 065
  16. LEVOMEPROMAZINE [Suspect]
     Dosage: 0.5 DDDS (DEFINED DAILY DOSE - ASSUMED AVERAGE MAINTENANCE DOSE PER DAY)
     Route: 065
  17. LEVOMEPROMAZINE [Suspect]
     Dosage: 0.8 DDDS  (DEFINED DAILY DOSE - ASSUMED AVERAGE MAINTENANCE DOSE PER DAY)
     Route: 065
  18. LEVOMEPROMAZINE [Suspect]
     Dosage: 1.5 DDDS  (DEFINED DAILY DOSE - ASSUMED AVERAGE MAINTENANCE DOSE PER DAY)
     Route: 065
  19. LEVOMEPROMAZINE [Suspect]
     Dosage: 2.5 DDDS (DEFINED DAILY DOSE - ASSUMED AVERAGE MAINTENANCE DOSE PER DAY)
     Route: 065
  20. PERPHENAZINE [Suspect]
     Dosage: 0.3 DDDS (DEFINED DAILY DOSE - ASSUMED AVERAGE MAINTENANCE DOSE PER DAY)
     Route: 065
  21. PERPHENAZINE [Suspect]
     Indication: PRODUCT USED FOR UNKNOWN INDICATION
     Route: 065
  22. CLOZAPINE [Suspect]
     Dosage: INCREASING DOSES UP TO 1.3 DDDS TWICE DAILY
     Route: 065
  23. CLOZAPINE [Suspect]
     Indication: PRODUCT USED FOR UNKNOWN INDICATION
     Dosage: 1/4 OF DAILY DOSE AT BEDTIME, WITHOUT CHANGING THE DAILY DOSE
     Route: 065
  24. CLOZAPINE [Suspect]
     Dosage: 0.2 DDDS  (DEFINED DAILY DOSE - ASSUMED AVERAGE MAINTENANCE DOSE PER DAY)
     Route: 065
  25. CLOZAPINE [Suspect]
     Dosage: 2.5 DDDS  (DEFINED DAILY DOSE - ASSUMED AVERAGE MAINTENANCE DOSE PER DAY)
     Route: 065
  26. TERBUTALINE [Suspect]
     Dosage: 0.33 DDD (DEFINED DAILY DOSAGE - ASSUMED AVERAGE MAINTENANCE DOSE PER DAY)
     Route: 065
  27. TERBUTALINE [Suspect]
     Indication: PRODUCT USED FOR UNKNOWN INDICATION
     Dosage: 1/4 OF DAILY DOSE AT BED TIME, WITHOUT CHANGING THE DOSE
     Route: 065
  28. CHLORPROTHIXENE [Suspect]
     Dosage: 1 DDDS (DEFINED DAILY DOSE - ASSUMED AVERAGE MAINTENANCE DOSE PER DAY)
     Route: 065
  29. CHLORPROTHIXENE [Suspect]
     Indication: PRODUCT USED FOR UNKNOWN INDICATION
     Route: 065
  30. CHLORPROTHIXENE [Suspect]
     Dosage: 0.2 DAILY
     Route: 065
  31. CHLORPROTHIXENE [Suspect]
     Dosage: 0.33 DDDS  (DEFINED DAILY DOSE - ASSUMED AVERAGE MAINTENANCE DOSE PER DAY)
     Route: 065

REACTIONS (6)
  - Priapism [Recovered/Resolved]
  - Substance abuse [Unknown]
  - Myalgia [Recovered/Resolved]
  - Psychotic disorder [Unknown]
  - Spontaneous penile erection [Recovered/Resolved]
  - Hyperprolactinaemia [Unknown]
